FAERS Safety Report 4409390-7 (Version None)
Quarter: 2004Q3

REPORT INFORMATION
  Report Type: 
  Country: None (occurrence: None)
  Receive Date: 20040727
  Receipt Date: 20040727
  Transmission Date: 20050211
  Serious: No
  Sender: FDA-Public Use
  Company Number: None

PATIENT
  Age: 81 Year
  Sex: Female

DRUGS (13)
  1. GATIFLOXACIN [Suspect]
     Indication: PNEUMONIA
     Dosage: 400 MG IV
     Route: 042
     Dates: start: 20040718
  2. ASPIRIN [Concomitant]
  3. DIAZEPAM [Concomitant]
  4. VALSARTAN [Concomitant]
  5. DOCUSATE [Concomitant]
  6. FERROUS SULFATE TAB [Concomitant]
  7. GLYBURIDE [Concomitant]
  8. GUAIFENISIN/DEXTROMETHORPHAN [Concomitant]
  9. KCL TAB [Concomitant]
  10. M.V.I. [Concomitant]
  11. NPH INSULIN [Concomitant]
  12. PROTONIX [Concomitant]
  13. ZITHROMAX [Concomitant]

REACTIONS (1)
  - HYPOGLYCAEMIA [None]
